FAERS Safety Report 18010335 (Version 2)
Quarter: 2020Q3

REPORT INFORMATION
  Report Type: Spontaneous
  Country: US (occurrence: US)
  Receive Date: 20200710
  Receipt Date: 20200831
  Transmission Date: 20201103
  Serious: Yes (Other)
  Sender: FDA-Public Use
  Company Number: US-NOVOPROD-738170

PATIENT
  Age: 69 Year
  Sex: Male
  Weight: 104.32 kg

DRUGS (1)
  1. OZEMPIC [Suspect]
     Active Substance: SEMAGLUTIDE
     Indication: TYPE 2 DIABETES MELLITUS
     Dosage: 0.5 MG, QW
     Route: 058
     Dates: start: 202001

REACTIONS (1)
  - Deafness neurosensory [Recovering/Resolving]

NARRATIVE: CASE EVENT DATE: 202005
